FAERS Safety Report 5222609-8 (Version None)
Quarter: 2007Q1

REPORT INFORMATION
  Report Type: 
  Country: None (occurrence: None)
  Receive Date: 20070129
  Receipt Date: 20070118
  Transmission Date: 20070707
  Serious: Yes (Hospitalization, Other)
  Sender: FDA-Public Use
  Company Number: FR-PURDUE-GBR_2006_0002601

PATIENT
  Age: 79 Year
  Sex: Male

DRUGS (3)
  1. OXYCONTIN [Suspect]
     Indication: CANCER PAIN
     Route: 048
     Dates: start: 20061102, end: 20061105
  2. OXYNORM [Suspect]
     Indication: CANCER PAIN
     Route: 048
     Dates: start: 20061102, end: 20061105
  3. TOPALGIC ^HOUDE^ [Concomitant]
     Indication: PAIN
     Dosage: 50 MG, DAILY
     Route: 065

REACTIONS (5)
  - AGITATION [None]
  - CHRONIC RESPIRATORY FAILURE [None]
  - CONFUSIONAL STATE [None]
  - DYSPNOEA [None]
  - PAIN IN EXTREMITY [None]
